FAERS Safety Report 4819140-8 (Version None)
Quarter: 2005Q4

REPORT INFORMATION
  Report Type: 
  Country: None (occurrence: None)
  Receive Date: 20051012
  Receipt Date: 20050816
  Transmission Date: 20060501
  Serious: No
  Sender: FDA-Public Use
  Company Number: A03200502528

PATIENT
  Sex: Male

DRUGS (2)
  1. UROXATRAL - ALFUSZOSIN HYDROCHLORIDE - TABLET PR - 10 MG [Suspect]
     Dosage: ORAL
     Route: 048
     Dates: start: 20050801
  2. WARFARIN SODIUM [Concomitant]

REACTIONS (3)
  - FATIGUE [None]
  - FEELING JITTERY [None]
  - INSOMNIA [None]
